FAERS Safety Report 8592283-1 (Version None)
Quarter: 2012Q3

REPORT INFORMATION
  Report Type: 
  Country: None (occurrence: None)
  Receive Date: 20120814
  Receipt Date: 20120807
  Transmission Date: 20120928
  Serious: Yes (Hospitalization)
  Sender: FDA-Public Use
  Company Number: GB-009507513-1208GBR004284

PATIENT

DRUGS (13)
  1. METFORMIN HCL [Concomitant]
     Dosage: 500 MG, BID
  2. NOVOLOG MIX 70/30 [Concomitant]
  3. ASPIRIN [Concomitant]
     Dosage: 75 MG, QD
  4. BUTRANS [Concomitant]
     Dosage: 1 DF, QW
  5. ZOCOR [Suspect]
     Indication: HYPERCHOLESTEROLAEMIA
     Dosage: 40 MG, UNK
     Route: 048
     Dates: end: 20120712
  6. AMILORIDE HYDROCHLORIDE (+) FUROSEMIDE [Concomitant]
     Dosage: 1 DF, BID
  7. VERAPAMIL [Concomitant]
     Dosage: 240 MG, BID
     Route: 048
  8. LEVOTHYROXINE SODIUM [Concomitant]
     Dosage: 50 MICROGRAM, QD
  9. OMEPRAZOLE [Concomitant]
     Dosage: 40 MG, BID
  10. CETIRIZINE HYDROCHLORIDE [Concomitant]
     Dosage: 10 MG, QD
  11. NICORANDIL [Concomitant]
     Dosage: 10 MG, QD
  12. LINAGLIPTIN [Concomitant]
     Dosage: 5 MG, QD
  13. FLUTICASONE PROPIONATE/SALMETEROL [Concomitant]
     Dosage: 2 DF, BID
     Route: 055

REACTIONS (6)
  - BLOOD CREATINE PHOSPHOKINASE INCREASED [None]
  - LETHARGY [None]
  - RENAL FAILURE ACUTE [None]
  - ALANINE AMINOTRANSFERASE INCREASED [None]
  - MUSCULAR WEAKNESS [None]
  - RHABDOMYOLYSIS [None]
